FAERS Safety Report 6388629-5 (Version None)
Quarter: 2009Q4

REPORT INFORMATION
  Report Type: 
  Country: None (occurrence: None)
  Receive Date: 20091005
  Receipt Date: 20090923
  Transmission Date: 20100525
  Serious: Yes (Hospitalization, Other)
  Sender: FDA-Public Use
  Company Number: BR-PFIZER INC-2009194715

PATIENT

DRUGS (4)
  1. CELEBRA [Suspect]
     Indication: BONE DISORDER
     Dosage: UNK
     Route: 048
     Dates: end: 20090101
  2. ARCOXIA [Concomitant]
  3. VIOXX [Concomitant]
  4. ETODOLAC [Concomitant]

REACTIONS (5)
  - ARRHYTHMIA [None]
  - BLINDNESS [None]
  - BONE PAIN [None]
  - CEREBROVASCULAR ACCIDENT [None]
  - COAGULOPATHY [None]
